FAERS Safety Report 23745731 (Version 2)
Quarter: 2024Q2

REPORT INFORMATION
  Report Type: Spontaneous
  Country: IT (occurrence: IT)
  Receive Date: 20240416
  Receipt Date: 20240423
  Transmission Date: 20240715
  Serious: Yes (Hospitalization, Other)
  Sender: FDA-Public Use
  Company Number: None

PATIENT
  Age: 49 Year
  Sex: Male
  Weight: 85 kg

DRUGS (3)
  1. OPDIVO [Suspect]
     Active Substance: NIVOLUMAB
     Indication: Renal cancer stage IV
     Dosage: PERFORMED 5 DOSES AT 240 MG EVERY 2 WEEKS (IN COMBINATION WITH CABOZANTINIB) AND CONTINUED WITH A DO
     Route: 042
     Dates: start: 20230509, end: 20231024
  2. OPDIVO [Suspect]
     Active Substance: NIVOLUMAB
     Route: 042
  3. CABOMETYX [Suspect]
     Active Substance: CABOZANTINIB S-MALATE
     Indication: Product used for unknown indication

REACTIONS (2)
  - Acute disseminated encephalomyelitis [Recovering/Resolving]
  - Autoimmune colitis [Recovered/Resolved]

NARRATIVE: CASE EVENT DATE: 20231026
